FAERS Safety Report 22534802 (Version 2)
Quarter: 2023Q4

REPORT INFORMATION
  Report Type: Spontaneous
  Country: IN (occurrence: IN)
  Receive Date: 20230608
  Receipt Date: 20231130
  Transmission Date: 20240110
  Serious: Yes (Other)
  Sender: FDA-Public Use
  Company Number: None

PATIENT
  Age: 30 Year
  Sex: Female

DRUGS (1)
  1. IBUPROFEN [Suspect]
     Active Substance: IBUPROFEN
     Indication: Product used for unknown indication
     Dosage: 400 MILLIGRAM; PER WEEK; TABLET
     Route: 048

REACTIONS (3)
  - Self-medication [Unknown]
  - Intentional product misuse [Unknown]
  - Generalised bullous fixed drug eruption [Recovered/Resolved]
